FAERS Safety Report 8193671-8 (Version None)
Quarter: 2012Q1

REPORT INFORMATION
  Report Type: 
  Country: None (occurrence: None)
  Receive Date: 20120308
  Receipt Date: 20120229
  Transmission Date: 20120608
  Serious: Yes (Other)
  Sender: FDA-Public Use
  Company Number: CA-JNJFOC-20120109953

PATIENT
  Sex: Female
  Weight: 48 kg

DRUGS (11)
  1. FOSAMAX [Concomitant]
     Route: 065
  2. PANTOPRAZOLE SODIUM [Concomitant]
     Route: 065
  3. SYNTHROID [Concomitant]
     Route: 065
  4. REMICADE [Suspect]
     Indication: RHEUMATOID ARTHRITIS
     Dosage: FIXED DOSE
     Route: 042
     Dates: start: 20060701
  5. CRESTOR [Concomitant]
     Route: 065
  6. NOVASEN [Concomitant]
     Route: 065
  7. COZAAR [Concomitant]
     Route: 065
  8. CALCIUM AND VITAMIN D [Concomitant]
     Route: 065
  9. FOSAMAX [Concomitant]
     Route: 065
  10. FERROUS SULFATE TAB [Concomitant]
     Route: 065
  11. SULFASALAZINE [Concomitant]
     Route: 065

REACTIONS (1)
  - BONE INFARCTION [None]
